FAERS Safety Report 10076624 (Version 2)
Quarter: 2014Q2

REPORT INFORMATION
  Report Type: Report from Study
  Country: US (occurrence: US)
  Receive Date: 20140414
  Receipt Date: 20140414
  Transmission Date: 20141212
  Serious: Yes (Hospitalization)
  Sender: FDA-Public Use
  Company Number: US-US-EMD SERONO, INC.-7277211

PATIENT
  Age: 68 Year
  Sex: Male

DRUGS (3)
  1. REBIF [Suspect]
     Indication: MULTIPLE SCLEROSIS
     Route: 058
     Dates: start: 20140220
  2. REBIF [Suspect]
     Route: 058
     Dates: end: 20140223
  3. LOVASTATIN [Suspect]
     Indication: PRODUCT USED FOR UNKNOWN INDICATION
     Dates: end: 20140223

REACTIONS (2)
  - Chronic obstructive pulmonary disease [Recovered/Resolved]
  - Groin pain [Recovered/Resolved]
